FAERS Safety Report 7767424-6 (Version None)
Quarter: 2011Q3

REPORT INFORMATION
  Report Type: 
  Country: None (occurrence: None)
  Receive Date: 20110922
  Receipt Date: 20110426
  Transmission Date: 20111222
  Serious: Yes (Other)
  Sender: FDA-Public Use
  Company Number: US-ASTRAZENECA-2011SE19180

PATIENT
  Age: 52 Year
  Sex: Female
  Weight: 81.6 kg

DRUGS (7)
  1. LEXAPRO [Concomitant]
  2. GENUVIA [Concomitant]
  3. ETHYROXONE [Concomitant]
  4. SEROQUEL XR [Suspect]
     Indication: MAJOR DEPRESSION
     Route: 048
     Dates: start: 20100601, end: 20110302
  5. METFORMIN HCL [Concomitant]
  6. SIMVASTATIN [Concomitant]
  7. KLONOPIN [Concomitant]
     Dosage: PRN

REACTIONS (2)
  - HYPERGLYCAEMIA [None]
  - BLOOD CHOLESTEROL INCREASED [None]
